FAERS Safety Report 7287595-8 (Version None)
Quarter: 2011Q1

REPORT INFORMATION
  Report Type: 
  Country: None (occurrence: None)
  Receive Date: 20110208
  Receipt Date: 20110208
  Transmission Date: 20110831
  Serious: Yes (Other)
  Sender: FDA-Public Use
  Company Number: None

PATIENT
  Age: 36 Year
  Sex: Female
  Weight: 49.8957 kg

DRUGS (1)
  1. SINGULAIR [Suspect]
     Dosage: QD PO
     Route: 048

REACTIONS (4)
  - MOOD ALTERED [None]
  - CONFUSIONAL STATE [None]
  - DIZZINESS [None]
  - SKIN DISCOLOURATION [None]
